FAERS Safety Report 24788704 (Version 4)
Quarter: 2025Q1

REPORT INFORMATION
  Report Type: Report from Study
  Country: US (occurrence: US)
  Receive Date: 20241230
  Receipt Date: 20250219
  Transmission Date: 20250409
  Serious: Yes (Other)
  Sender: SUNOVION
  Company Number: US-SMPA-2024SPA005985

PATIENT

DRUGS (1)
  1. ORGOVYX [Suspect]
     Active Substance: RELUGOLIX
     Indication: Prostate cancer
     Dosage: 120 MG, QD
     Route: 048
     Dates: start: 20241116

REACTIONS (5)
  - Nephrolithiasis [Unknown]
  - Urinary tract pain [Unknown]
  - Procedural pain [Unknown]
  - Hot flush [Unknown]
  - Incorrect dose administered [Unknown]
